FAERS Safety Report 5131006-5 (Version None)
Quarter: 2006Q4

REPORT INFORMATION
  Report Type: 
  Country: None (occurrence: None)
  Receive Date: 20061019
  Receipt Date: 20061002
  Transmission Date: 20070319
  Serious: Yes (Hospitalization)
  Sender: FDA-Public Use
  Company Number: DE-ALLERGAN-0605902US

PATIENT
  Age: 65 Year
  Sex: Male

DRUGS (8)
  1. BOTOX [Suspect]
     Indication: TORTICOLLIS
     Dosage: 170 UNITS, SINGLE
     Route: 030
     Dates: start: 20060913, end: 20060913
  2. ALLOPURINOL [Concomitant]
     Indication: DRUG USE FOR UNKNOWN INDICATION
  3. CAPTOHEXAL [Concomitant]
     Indication: DRUG USE FOR UNKNOWN INDICATION
  4. CONCOR                             /00802602/ [Concomitant]
     Indication: DRUG USE FOR UNKNOWN INDICATION
  5. NOVALGIN                           /00039501/ [Concomitant]
     Indication: DRUG USE FOR UNKNOWN INDICATION
  6. MIRTAZAPINE [Concomitant]
     Indication: DRUG USE FOR UNKNOWN INDICATION
  7. ACETAMINOPHEN [Concomitant]
     Indication: DRUG USE FOR UNKNOWN INDICATION
  8. LIORESAL [Concomitant]
     Indication: DRUG USE FOR UNKNOWN INDICATION

REACTIONS (4)
  - ASPIRATION [None]
  - DYSPHAGIA [None]
  - DYSPNOEA [None]
  - RESPIRATORY FAILURE [None]
